FAERS Safety Report 13942748 (Version 1)
Quarter: 2017Q3

REPORT INFORMATION
  Report Type: Spontaneous
  Country: US (occurrence: None)
  Receive Date: 20170907
  Receipt Date: 20170907
  Transmission Date: 20171127
  Serious: Yes (Hospitalization)
  Sender: FDA-Public Use
  Company Number: None

PATIENT
  Age: 15 Year
  Sex: Female
  Weight: 69.3 kg

DRUGS (6)
  1. CYTARABINE. [Suspect]
     Active Substance: CYTARABINE
     Dates: end: 20131217
  2. VINCRISTINE SULFATE. [Suspect]
     Active Substance: VINCRISTINE SULFATE
     Dates: end: 20131231
  3. ONCASPAR [Suspect]
     Active Substance: PEGASPARGASE
     Dates: end: 20131220
  4. METHOTREXATE. [Suspect]
     Active Substance: METHOTREXATE
     Dates: end: 20131224
  5. PREDNISONE. [Suspect]
     Active Substance: PREDNISONE
     Dates: end: 20140108
  6. DAUNORUBICIN [Suspect]
     Active Substance: DAUNORUBICIN
     Dates: end: 20140102

REACTIONS (12)
  - Hepatic encephalopathy [None]
  - Renal failure [None]
  - Malaise [None]
  - Confusional state [None]
  - Hepatic failure [None]
  - Hypoxia [None]
  - Hepatomegaly [None]
  - International normalised ratio increased [None]
  - Mucosal inflammation [None]
  - Sepsis [None]
  - Respiratory failure [None]
  - Candida sepsis [None]

NARRATIVE: CASE EVENT DATE: 20140108
